FAERS Safety Report 14231963 (Version 1)
Quarter: 2017Q4

REPORT INFORMATION
  Report Type: Spontaneous
  Country: US (occurrence: US)
  Receive Date: 20171128
  Receipt Date: 20171128
  Transmission Date: 20180321
  Serious: No
  Sender: FDA-Public Use
  Company Number: US-LEADIANT BIOSCIENCES INC-2016STPI000836

PATIENT
  Age: 61 Year
  Sex: Male

DRUGS (2)
  1. VITAMIN B [Concomitant]
     Active Substance: VITAMIN B
  2. MATULANE [Suspect]
     Active Substance: PROCARBAZINE HYDROCHLORIDE
     Indication: BRAIN NEOPLASM
     Dosage: 100 MG, OTHER
     Route: 048
     Dates: start: 20160628

REACTIONS (2)
  - Abdominal pain upper [Unknown]
  - Pollakiuria [Unknown]

NARRATIVE: CASE EVENT DATE: 201610
